FAERS Safety Report 6552469-4 (Version None)
Quarter: 2010Q1

REPORT INFORMATION
  Report Type: 
  Country: None (occurrence: None)
  Receive Date: 20100126
  Receipt Date: 20100120
  Transmission Date: 20100710
  Serious: Yes (Life-Threatening, Other)
  Sender: FDA-Public Use
  Company Number: PHEH2010US01146

PATIENT
  Sex: Female

DRUGS (4)
  1. RECLAST [Suspect]
     Dosage: UNK
     Route: 042
     Dates: start: 20100112
  2. VITAMIN D [Concomitant]
  3. CALCIUM [Concomitant]
  4. PREMARIN [Concomitant]

REACTIONS (17)
  - ABASIA [None]
  - ABDOMINAL DISCOMFORT [None]
  - ASTHENIA [None]
  - BLOOD PRESSURE DECREASED [None]
  - BONE PAIN [None]
  - CHILLS [None]
  - DYSPNOEA [None]
  - FEELING ABNORMAL [None]
  - HEART RATE INCREASED [None]
  - MUSCULAR WEAKNESS [None]
  - MUSCULOSKELETAL PAIN [None]
  - NAUSEA [None]
  - NECK PAIN [None]
  - OEDEMA PERIPHERAL [None]
  - PALPITATIONS [None]
  - POLLAKIURIA [None]
  - TREMOR [None]
